FAERS Safety Report 14598228 (Version 1)
Quarter: 2018Q1

REPORT INFORMATION
  Report Type: Spontaneous
  Country: JP (occurrence: JP)
  Receive Date: 20180305
  Receipt Date: 20180305
  Transmission Date: 20180509
  Serious: Yes (Other)
  Sender: FDA-Public Use
  Company Number: JP-009507513-1802JPN002967J

PATIENT
  Age: 91 Year
  Sex: Female

DRUGS (4)
  1. REFLEX [Concomitant]
     Active Substance: MIRTAZAPINE
     Dosage: 0.5 DF, UNK
     Route: 048
  2. MEMARY [Concomitant]
     Active Substance: MEMANTINE HYDROCHLORIDE
     Indication: DEMENTIA
     Dosage: 5 MG, QD
     Route: 065
  3. BELSOMRA [Suspect]
     Active Substance: SUVOREXANT
     Indication: INSOMNIA
     Dosage: 15 MG, QD
     Route: 048
  4. ETIZOLAM [Suspect]
     Active Substance: ETIZOLAM
     Indication: INSOMNIA
     Dosage: 15 MG, QD
     Route: 048

REACTIONS (2)
  - Upper limb fracture [Unknown]
  - Dizziness [Unknown]

NARRATIVE: CASE EVENT DATE: 20180208
